FAERS Safety Report 4418196-4 (Version None)
Quarter: 2004Q3

REPORT INFORMATION
  Report Type: 
  Country: None (occurrence: None)
  Receive Date: 20040809
  Receipt Date: 20031230
  Transmission Date: 20050211
  Serious: No
  Sender: FDA-Public Use
  Company Number: US-GLAXOSMITHKLINE-A0490847A

PATIENT
  Age: 39 Year
  Sex: Female

DRUGS (3)
  1. PAXIL CR [Suspect]
     Indication: PANIC DISORDER
     Dosage: 37.5MG PER DAY
     Route: 048
  2. PAXIL [Suspect]
     Indication: OBSESSIVE-COMPULSIVE DISORDER
     Dosage: 40MG PER DAY
     Route: 048
  3. WELLBUTRIN [Concomitant]

REACTIONS (2)
  - BINGE EATING [None]
  - WEIGHT INCREASED [None]
